FAERS Safety Report 22803629 (Version 3)
Quarter: 2023Q4

REPORT INFORMATION
  Report Type: Spontaneous
  Country: US (occurrence: US)
  Receive Date: 20230809
  Receipt Date: 20231228
  Transmission Date: 20240109
  Serious: Yes (Hospitalization, Other)
  Sender: FDA-Public Use
  Company Number: US-PFIZER INC-202100951455

PATIENT
  Age: 66 Year
  Sex: Male
  Weight: 54.875 kg

DRUGS (2)
  1. BOSULIF [Suspect]
     Active Substance: BOSUTINIB MONOHYDRATE
     Indication: Chronic myeloid leukaemia
     Dosage: 1 TABLET ORALLY EVERY DAY. SWALLOW WHOLE; DO NOT BREAK TABLET. TAKE W/ FOOD
     Route: 048
  2. BOSULIF [Suspect]
     Active Substance: BOSUTINIB MONOHYDRATE
     Indication: Anaemia

REACTIONS (8)
  - Hyperkalaemia [Unknown]
  - Hemiparesis [Unknown]
  - Brain stem infarction [Unknown]
  - Transient ischaemic attack [Unknown]
  - Cerebrovascular accident [Unknown]
  - Cerebral artery stenosis [Unknown]
  - Dizziness [Unknown]
  - Hepatic enzyme increased [Recovering/Resolving]
